FAERS Safety Report 11135038 (Version 2)
Quarter: 2017Q1

REPORT INFORMATION
  Report Type: Spontaneous
  Country: FR (occurrence: FR)
  Receive Date: 20150525
  Receipt Date: 20170213
  Transmission Date: 20170428
  Serious: Yes (Death, Hospitalization)
  Sender: FDA-Public Use
  Company Number: FR-JNJFOC-20150507751

PATIENT
  Age: 75 Year
  Sex: Male

DRUGS (2)
  1. DUROGESIC [Suspect]
     Active Substance: FENTANYL
     Indication: PRODUCT USED FOR UNKNOWN INDICATION
     Route: 062
     Dates: start: 201411, end: 201501
  2. DUROGESIC [Suspect]
     Active Substance: FENTANYL
     Indication: PRODUCT USED FOR UNKNOWN INDICATION
     Route: 062
     Dates: start: 20150129

REACTIONS (6)
  - Respiratory distress [Not Recovered/Not Resolved]
  - Aggression [Unknown]
  - Epilepsy [Unknown]
  - Respiratory failure [Fatal]
  - Hyperthermia [Unknown]
  - Hallucination [Recovered/Resolved]
